FAERS Safety Report 9751672 (Version 2)
Quarter: 2013Q4

REPORT INFORMATION
  Report Type: Report from Study
  Country: US (occurrence: US)
  Receive Date: 20131213
  Receipt Date: 20131213
  Transmission Date: 20140711
  Serious: Yes (Other)
  Sender: FDA-Public Use
  Company Number: US-ROCHE-1301332

PATIENT
  Age: 50 Year
  Sex: Female
  Weight: 74.8 kg

DRUGS (12)
  1. XELODA [Suspect]
     Indication: COLON CANCER
     Route: 048
     Dates: start: 20130905, end: 20131105
  2. AVASTIN [Suspect]
     Indication: COLON CANCER
     Route: 065
     Dates: start: 2011
  3. AVASTIN [Suspect]
     Route: 042
     Dates: start: 20120214
  4. LEXAPRO [Concomitant]
     Indication: DEPRESSION
     Dosage: LOW DOSE MAINTENANCE
     Route: 065
  5. OXALIPLATIN [Concomitant]
     Indication: COLON CANCER
     Dosage: FOR 3-4 MONTHS
     Route: 065
     Dates: start: 2011
  6. 5-FU [Concomitant]
     Indication: COLON CANCER
     Route: 065
     Dates: start: 2011
  7. IRINOTECAN [Concomitant]
     Indication: COLON CANCER
  8. NORCO [Concomitant]
  9. BENADRYL (UNITED STATES) [Concomitant]
  10. ALOXI [Concomitant]
     Indication: NAUSEA
     Route: 065
     Dates: start: 20120214
  11. EMEND [Concomitant]
     Indication: NAUSEA
     Route: 042
  12. ATIVAN ORAL [Concomitant]
     Indication: NAUSEA
     Dosage: 0.5-1 MG
     Route: 048

REACTIONS (23)
  - Abdominal pain upper [Recovering/Resolving]
  - Local swelling [Recovering/Resolving]
  - Skin fissures [Recovering/Resolving]
  - Erythema [Recovering/Resolving]
  - Skin exfoliation [Recovering/Resolving]
  - Haemorrhage [Recovering/Resolving]
  - Nausea [Recovering/Resolving]
  - Rhinorrhoea [Recovered/Resolved]
  - Lacrimation increased [Recovered/Resolved]
  - Dehydration [Recovering/Resolving]
  - Nasal dryness [Recovering/Resolving]
  - Dry eye [Recovering/Resolving]
  - Abdominal distension [Recovered/Resolved]
  - Dyspepsia [Recovered/Resolved]
  - Neoplasm [Unknown]
  - Salivary gland enlargement [Recovered/Resolved]
  - Swollen tongue [Recovered/Resolved]
  - Gingival ulceration [Not Recovered/Not Resolved]
  - Vulvovaginal pain [Not Recovered/Not Resolved]
  - Muscle spasms [Not Recovered/Not Resolved]
  - Diarrhoea [Unknown]
  - Headache [Unknown]
  - Glossitis [Recovered/Resolved]
